FAERS Safety Report 7370122-4 (Version None)
Quarter: 2011Q1

REPORT INFORMATION
  Report Type: 
  Country: None (occurrence: None)
  Receive Date: 20110323
  Receipt Date: 20110310
  Transmission Date: 20110831
  Serious: Yes (Other)
  Sender: FDA-Public Use
  Company Number: PHHY2010BR67584

PATIENT
  Sex: Female

DRUGS (2)
  1. ACLASTA [Suspect]
     Indication: OSTEOPOROSIS
     Dosage: 5MG/100ML
     Route: 042
     Dates: start: 20090709
  2. ACLASTA [Suspect]
     Dosage: 5MG/100ML
     Route: 042
     Dates: start: 20110218

REACTIONS (3)
  - TENDON RUPTURE [None]
  - UPPER LIMB FRACTURE [None]
  - FALL [None]
